FAERS Safety Report 6805420-3 (Version None)
Quarter: 2010Q2

REPORT INFORMATION
  Report Type: 
  Country: None (occurrence: None)
  Receive Date: 20100628
  Receipt Date: 20100628
  Transmission Date: 20101027
  Serious: Yes (Life-Threatening)
  Sender: FDA-Public Use
  Company Number: None

PATIENT
  Sex: Female
  Weight: 116 kg

DRUGS (2)
  1. LOVENOX [Suspect]
     Indication: ATRIAL FIBRILLATION
     Dosage: 120MG Q12HRS SUBCUTANEOUS
     Route: 058
     Dates: start: 20100606
  2. LOVENOX [Suspect]
     Indication: ATRIAL FIBRILLATION
     Dosage: 120MG Q12HRS SUBCUTANEOUS
     Route: 058
     Dates: start: 20100608

REACTIONS (3)
  - ABDOMINAL WALL HAEMATOMA [None]
  - HAEMOGLOBIN DECREASED [None]
  - HYPOVOLAEMIC SHOCK [None]
